FAERS Safety Report 9473657 (Version 2)
Quarter: 2013Q3

REPORT INFORMATION
  Report Type: Spontaneous
  Country: US (occurrence: US)
  Receive Date: 20130823
  Receipt Date: 20130823
  Transmission Date: 20140515
  Serious: Yes (Hospitalization, Other)
  Sender: FDA-Public Use
  Company Number: US-BRISTOL-MYERS SQUIBB COMPANY-16842270

PATIENT
  Age: 57 Year
  Sex: Female

DRUGS (21)
  1. SPRYCEL [Suspect]
     Indication: CHRONIC MYELOID LEUKAEMIA
     Dosage: DISCON:05JUN12.ALSO RECEIVED22MAY1827JUL12,2,8AUG12?RESTA:24JUN12:DOSE:50MG/D.REDUCED 40MG/DAY
     Route: 048
     Dates: start: 20120513, end: 20120802
  2. SULFAMETHOXAZOLE [Concomitant]
     Dosage: ALSO RECEIVED ON 11MAY12
     Dates: start: 20120509
  3. PROAIR HFA [Concomitant]
     Dosage: PROAIR INHALER
     Route: 055
  4. KLOR-CON [Concomitant]
     Dosage: ALSO RECEIVED ON 11MAY12
     Dates: start: 20110509
  5. LEVOTHYROXIN [Concomitant]
     Dosage: ALSO RECEIVED ON 11,22MAY,19JUN,18,27JUL12,8AUG12
     Dates: start: 20120511
  6. EXFORGE [Concomitant]
     Dosage: ALSO RECEIVED ON 11,22MAY,19JUN,18,27JUL12,8AUG12,STRENGTH:5-320
     Dates: start: 20120509
  7. TAMOXIFEN [Concomitant]
     Dosage: ALSO RECEIVED ON 11,22MAY,19JUN,18,27JUL12,2,8AUG12
     Dates: start: 20120509
  8. RANITIDINE [Concomitant]
     Dosage: ALSO RECEIVED ON 11,22MAY,19JUN
     Dates: start: 20120509
  9. HYDROCODONE [Concomitant]
     Dosage: ALSO RECEIVED ON 11,22MAY,
     Dates: start: 20120509
  10. CYMBALTA [Concomitant]
     Dosage: ALSO RECEIVED ON 11,22MAY,19JUN,18,27JUL12,8AUG12
     Dates: start: 20120509
  11. DETROL LA [Concomitant]
     Dosage: ALSO RECEIVED ON 11,22MAY,19JUN,18,27JUL12,8AUG12
     Dates: start: 20120509
  12. HYDROCHLOROTHIAZIDE [Concomitant]
     Dosage: ALSO RECEIVED ON 11MAY12,22MAY12,09JUN12,18JUL12
     Dates: start: 20120509
  13. JANUMET [Concomitant]
     Dosage: 1DF=50-1000UNS,ALSO RECEIVED ON 11,22MAY,19JUN,18,27JUL12,8AUG12
     Dates: start: 20120509
  14. ALLOPURINOL [Concomitant]
     Dosage: ALSO RECEIVED ON 11,22MAY,19JUN,18,27JUL12,8AUG12
     Dates: start: 20120511
  15. ATENOLOL [Concomitant]
     Dosage: ALSO RECEIVED ON 11,22MAY,19JUN,18,27JUL12,8AUG12
     Dates: start: 20120511
  16. COMPAZINE [Concomitant]
     Dates: start: 20120509
  17. FOLIC ACID [Concomitant]
     Dosage: ALSO RECEIVED ON 19JUN,18,27JUL12,8AUG12
     Dates: start: 20120522
  18. POTASSIUM CHLORIDE [Concomitant]
     Dosage: ALSO RECEIVED ON 19JUN
     Dates: start: 20120522
  19. METFORMIN [Concomitant]
  20. KEFLEX [Concomitant]
     Dates: start: 20120522
  21. ADVAIR [Concomitant]
     Dates: start: 20120619

REACTIONS (5)
  - Bone marrow failure [Unknown]
  - Renal failure [Recovered/Resolved]
  - Nausea [Recovered/Resolved]
  - Vomiting [Recovered/Resolved]
  - Diarrhoea [Recovered/Resolved]
